FAERS Safety Report 15102723 (Version 1)
Quarter: 2018Q2

REPORT INFORMATION
  Report Type: Spontaneous
  Country: US (occurrence: US)
  Receive Date: 20180611
  Receipt Date: 20180611
  Transmission Date: 20180711
  Serious: No
  Sender: FDA-Public Use
  Company Number: None

PATIENT
  Age: 22 Year
  Sex: Female

DRUGS (1)
  1. LUPRON DEPOT [Suspect]
     Active Substance: LEUPROLIDE ACETATE
     Indication: MALAISE
     Route: 030
     Dates: start: 20180315

REACTIONS (2)
  - Skin discolouration [None]
  - Pain of skin [None]

NARRATIVE: CASE EVENT DATE: 20180608
